FAERS Safety Report 19615055 (Version 1)
Quarter: 2021Q3

REPORT INFORMATION
  Report Type: Spontaneous
  Country: US (occurrence: US)
  Receive Date: 20210727
  Receipt Date: 20210727
  Transmission Date: 20211014
  Serious: Yes (Hospitalization, Other)
  Sender: FDA-Public Use
  Company Number: US-HIKMA PHARMACEUTICALS USA INC.-US-H14001-21-55028

PATIENT
  Age: 15 Year
  Sex: Male

DRUGS (4)
  1. AMOXICILLIN/CLAVULANIC ACID [Concomitant]
     Active Substance: AMOXICILLIN\CLAVULANIC ACID
     Indication: BACTERIAL INFECTION
     Dosage: UNKNOWN
     Route: 065
  2. DEXAMETHASONE. [Suspect]
     Active Substance: DEXAMETHASONE
     Indication: GOUT
     Dosage: UNKNOWN
     Route: 014
  3. IBUPROFEN. [Concomitant]
     Active Substance: IBUPROFEN
     Indication: GOUT
     Dosage: UNKNOWN
     Route: 065
  4. PREDNISONE. [Suspect]
     Active Substance: PREDNISONE
     Indication: BRONCHIAL HYPERREACTIVITY
     Dosage: UNKNOWN
     Route: 065

REACTIONS (6)
  - Osteomyelitis blastomyces [Recovered/Resolved]
  - Blastomycosis [Recovered/Resolved]
  - Arthritis bacterial [Recovered/Resolved]
  - Disseminated blastomycosis [Recovered/Resolved]
  - Subperiosteal abscess [Recovered/Resolved]
  - Extremity necrosis [Recovered/Resolved]
